FAERS Safety Report 11431012 (Version 1)
Quarter: 2015Q3

REPORT INFORMATION
  Report Type: Report from Study
  Country: US (occurrence: US)
  Receive Date: 20150828
  Receipt Date: 20150828
  Transmission Date: 20151125
  Serious: Yes (Other)
  Sender: FDA-Public Use
  Company Number: PHEH2015US016293

PATIENT
  Sex: Female

DRUGS (2)
  1. ILARIS [Suspect]
     Active Substance: CANAKINUMAB
     Dosage: 210 MG, QMO
     Route: 058
     Dates: start: 20130603, end: 20150819
  2. TACROLIMUS. [Suspect]
     Active Substance: TACROLIMUS
     Indication: PRODUCT USED FOR UNKNOWN INDICATION
     Dosage: UNK
     Route: 065

REACTIONS (3)
  - Transaminases increased [Unknown]
  - Liver injury [Unknown]
  - Prescribed overdose [Not Recovered/Not Resolved]
